FAERS Safety Report 5216336-0 (Version None)
Quarter: 2007Q1

REPORT INFORMATION
  Report Type: 
  Country: None (occurrence: None)
  Receive Date: 20070118
  Receipt Date: 20070110
  Transmission Date: 20070707
  Serious: Yes (Hospitalization, Other)
  Sender: FDA-Public Use
  Company Number: 2006BI010491

PATIENT
  Age: 58 Year
  Sex: Male
  Weight: 97.5234 kg

DRUGS (5)
  1. AVONEX [Suspect]
     Indication: MULTIPLE SCLEROSIS
     Dates: start: 19980101, end: 20001201
  2. AVONEX [Suspect]
     Indication: MULTIPLE SCLEROSIS
     Dosage: 15 UG;QW;IM
     Route: 030
     Dates: start: 20060828
  3. AVONEX [Suspect]
     Indication: MULTIPLE SCLEROSIS
     Dosage: 30 UG;QW;IM
     Route: 030
     Dates: start: 20061001
  4. BACLOFEN [Concomitant]
  5. AMANTADINE HCL [Concomitant]

REACTIONS (9)
  - BLADDER DISORDER [None]
  - DEVICE LEAKAGE [None]
  - ERECTILE DYSFUNCTION [None]
  - INFLUENZA LIKE ILLNESS [None]
  - ORGAN FAILURE [None]
  - PROSTATE CANCER [None]
  - SCAR [None]
  - URETHRAL DISORDER [None]
  - URINARY INCONTINENCE [None]
